FAERS Safety Report 6523679-7 (Version None)
Quarter: 2009Q4

REPORT INFORMATION
  Report Type: 
  Country: None (occurrence: None)
  Receive Date: 20091222
  Receipt Date: 20091215
  Transmission Date: 20100525
  Serious: Yes (Life-Threatening, Other)
  Sender: FDA-Public Use
  Company Number: SPV1-2009-02553

PATIENT
  Age: 59 Year
  Sex: Male

DRUGS (13)
  1. FOSRENOL [Suspect]
     Indication: HYPERPHOSPHATAEMIA
     Dosage: ORAL
     Route: 048
     Dates: start: 20090420
  2. FOSRENOL [Suspect]
     Indication: HYPERPHOSPHATAEMIA
     Dosage: ORAL
     Route: 048
     Dates: start: 20090803
  3. RENAGEL [Concomitant]
  4. CALTAN (CALCIUM CARBONATE) [Concomitant]
  5. ONEALFA (ALFACALCIDOL) [Concomitant]
  6. ENALAPRIL MALEATE [Concomitant]
  7. ASPIRIN [Concomitant]
  8. PLAVIX [Concomitant]
  9. SELOKEN /00376902/ (METOPROLOL TARTRATE) [Concomitant]
  10. DIART (AZOSEMIDE) [Concomitant]
  11. ADALAT CC [Concomitant]
  12. PROTECADIN (LAFUTIDINE) [Concomitant]
  13. EPOGEN [Concomitant]

REACTIONS (2)
  - HYPOCALCAEMIA [None]
  - SHUNT MALFUNCTION [None]
